FAERS Safety Report 25271981 (Version 2)
Quarter: 2025Q3

REPORT INFORMATION
  Report Type: Spontaneous
  Country: IN (occurrence: None)
  Receive Date: 20250506
  Receipt Date: 20250804
  Transmission Date: 20251021
  Serious: Yes (Other)
  Sender: NATCO PHARMA
  Company Number: IN-NATCOUSA-2025-NATCOUSA-000288

PATIENT
  Age: 75 Year
  Sex: Female

DRUGS (1)
  1. ANASTROZOLE [Suspect]
     Active Substance: ANASTROZOLE
     Indication: Invasive ductal breast carcinoma
     Dosage: HORMONAL THERAPY
     Route: 048

REACTIONS (1)
  - Posterior reversible encephalopathy syndrome [Recovering/Resolving]
